FAERS Safety Report 23506611 (Version 1)
Quarter: 2024Q1

REPORT INFORMATION
  Report Type: Report from Study
  Country: US (occurrence: US)
  Receive Date: 20240209
  Receipt Date: 20240209
  Transmission Date: 20240410
  Serious: Yes (Other)
  Sender: FDA-Public Use
  Company Number: US-E2BLSMVVAL-CLI/USA/24/0002172

PATIENT
  Age: 28 Year
  Sex: Female

DRUGS (1)
  1. ZENATANE [Suspect]
     Active Substance: ISOTRETINOIN
     Indication: Acne
     Dosage: TWICE A DAY
     Dates: start: 20230926, end: 20240130

REACTIONS (2)
  - Exposure during pregnancy [Unknown]
  - Constipation [Unknown]

NARRATIVE: CASE EVENT DATE: 20240131
